FAERS Safety Report 8993659 (Version 2)
Quarter: 2013Q1

REPORT INFORMATION
  Report Type: Spontaneous
  Country: US (occurrence: US)
  Receive Date: 20130102
  Receipt Date: 20130305
  Transmission Date: 20140127
  Serious: No
  Sender: FDA-Public Use
  Company Number: US-AMGEN-USASP2012084056

PATIENT
  Age: 68 Year
  Sex: Female
  Weight: 100.59 kg

DRUGS (2)
  1. ENBREL [Suspect]
     Indication: PSORIATIC ARTHROPATHY
     Dosage: 50 MG, QWK
     Route: 058
     Dates: start: 200904
  2. METHOTREXATE [Concomitant]
     Dosage: 12.5 UNK, QWK
     Dates: start: 2009

REACTIONS (2)
  - Rash [Recovered/Resolved]
  - Rash erythematous [Not Recovered/Not Resolved]
